FAERS Safety Report 9322595 (Version 2)
Quarter: 2013Q3

REPORT INFORMATION
  Report Type: Spontaneous
  Country: IT (occurrence: IT)
  Receive Date: 20130531
  Receipt Date: 20130802
  Transmission Date: 20140515
  Serious: Yes (Other)
  Sender: FDA-Public Use
  Company Number: IT-ASTRAZENECA-2013SE36971

PATIENT
  Age: 45 Year
  Sex: Male
  Weight: 60 kg

DRUGS (6)
  1. SEROQUEL [Suspect]
     Dosage: 52 TABLETS
     Route: 048
     Dates: start: 20130425
  2. REMERON [Suspect]
     Dosage: 26 TABLETS
     Route: 048
     Dates: start: 20130425
  3. INVEGA [Suspect]
     Route: 048
     Dates: start: 20130425
  4. FELISON [Suspect]
     Route: 048
     Dates: start: 20130425
  5. CYMBALTA [Suspect]
     Route: 048
     Dates: start: 20130425
  6. ALCOHOL [Suspect]
     Route: 065
     Dates: start: 20130425

REACTIONS (3)
  - Overdose [Unknown]
  - Intentional self-injury [Unknown]
  - Drug abuse [Unknown]
